FAERS Safety Report 18585658 (Version 2)
Quarter: 2020Q4

REPORT INFORMATION
  Report Type: Spontaneous
  Country: US (occurrence: US)
  Receive Date: 20201207
  Receipt Date: 20201216
  Transmission Date: 20210114
  Serious: Yes (Hospitalization)
  Sender: FDA-Public Use
  Company Number: US-AMGEN-USASP2020198186

PATIENT
  Age: 30 Year
  Sex: Female
  Weight: 81.19 kg

DRUGS (1)
  1. BLINCYTO [Suspect]
     Active Substance: BLINATUMOMAB
     Indication: PLASMA CELL LEUKAEMIA
     Dosage: 28 MICROGRAM, QD
     Route: 065
     Dates: start: 202011

REACTIONS (6)
  - Off label use [Unknown]
  - Gastric disorder [Unknown]
  - Pyrexia [Unknown]
  - Fatigue [Unknown]
  - Decreased appetite [Unknown]
  - Chills [Unknown]

NARRATIVE: CASE EVENT DATE: 2020
